FAERS Safety Report 9190131 (Version 1)
Quarter: 2013Q1

REPORT INFORMATION
  Report Type: Spontaneous
  Country: US (occurrence: None)
  Receive Date: 20120703
  Receipt Date: 20120703
  Transmission Date: 20140127
  Serious: No
  Sender: FDA-Public Use
  Company Number: PHEH2012US010009

PATIENT
  Sex: Female
  Weight: 49.9 kg

DRUGS (6)
  1. GILENYA [Suspect]
     Route: 048
  2. CYMBALTA (DULOXETINE HYDROCHLORIDE) CAPSULE [Concomitant]
  3. CALCIUM (CALCIUM) TABLET [Concomitant]
  4. VESICARE (SOLIFENACIN) TABLET [Concomitant]
  5. MULTIVITAMIN (MULTIVITAMIN NOS) CAPSULE [Concomitant]
  6. VITAMIN D (ERGOCALCIFEROL) CAPSULE [Concomitant]

REACTIONS (1)
  - Incontinence [None]
